FAERS Safety Report 21786031 (Version 1)
Quarter: 2022Q4

REPORT INFORMATION
  Report Type: Report from Study
  Country: US (occurrence: US)
  Receive Date: 20221228
  Receipt Date: 20221228
  Transmission Date: 20230112
  Serious: No
  Sender: FDA-Public Use
  Company Number: US-ABBVIE-4248189

PATIENT
  Age: 50 Year
  Sex: Female
  Weight: 50.8 kg

DRUGS (1)
  1. SKYRIZI [Suspect]
     Active Substance: RISANKIZUMAB-RZAA
     Indication: Crohn^s disease
     Dosage: INTRAVENOUS INFUSION?FREQUENCY TEXT: 3 DOSES
     Route: 042
     Dates: start: 20220927

REACTIONS (12)
  - SARS-CoV-2 test positive [Recovering/Resolving]
  - Throat irritation [Recovered/Resolved]
  - Headache [Recovered/Resolved]
  - Pyrexia [Recovered/Resolved]
  - Fatigue [Recovered/Resolved]
  - Cough [Recovered/Resolved]
  - Decreased appetite [Recovered/Resolved]
  - Diarrhoea [Recovered/Resolved]
  - Rhinorrhoea [Not Recovered/Not Resolved]
  - Chills [Recovered/Resolved]
  - Sneezing [Recovered/Resolved]
  - Productive cough [Not Recovered/Not Resolved]

NARRATIVE: CASE EVENT DATE: 20221215
